FAERS Safety Report 9422457 (Version 2)
Quarter: 2013Q3

REPORT INFORMATION
  Report Type: Spontaneous
  Country: PL (occurrence: PL)
  Receive Date: 20130726
  Receipt Date: 20130807
  Transmission Date: 20140515
  Serious: Yes (Hospitalization, Other)
  Sender: FDA-Public Use
  Company Number: PL-NOVOPROD-383582

PATIENT
  Age: 79 Year
  Sex: Male
  Weight: 95.7 kg

DRUGS (23)
  1. ACTRAPID HM PENFILL [Suspect]
     Indication: TYPE 2 DIABETES MELLITUS
     Dosage: UNK
     Route: 065
     Dates: end: 20130225
  2. METRONIDAZOL                       /00012501/ [Concomitant]
     Dosage: UNK
     Route: 065
  3. BIODACYNA [Concomitant]
     Dosage: UNK
     Route: 065
  4. FUROSEMIDUM                        /00032601/ [Concomitant]
     Dosage: UNK
     Route: 065
  5. HYDROXYZINUM [Concomitant]
     Dosage: UNK
     Route: 065
  6. BIOTUM [Concomitant]
     Dosage: UNK
     Route: 065
  7. MAGNEZIN [Concomitant]
     Dosage: UNK
     Route: 065
  8. LACIDOFIL [Concomitant]
     Dosage: UNK
     Route: 065
  9. GENSULIN R [Concomitant]
     Dosage: UNK
     Route: 065
  10. GENSULIN N [Concomitant]
     Dosage: UNK
     Route: 065
  11. GENSULIN M [Concomitant]
     Dosage: UNK
     Route: 065
  12. KALDYUM [Concomitant]
     Dosage: UNK
     Route: 065
  13. ATROVENT [Concomitant]
     Dosage: UNK
     Route: 065
  14. POLTRAM [Concomitant]
     Dosage: UNK
     Route: 065
  15. POLOCARD [Concomitant]
     Dosage: UNK
     Route: 065
  16. KALIUM CHLORATUM [Concomitant]
     Dosage: UNK
     Route: 065
  17. PARACETAMOL [Concomitant]
     Dosage: UNK
     Route: 065
  18. TRITACE [Concomitant]
     Dosage: UNK
     Route: 065
  19. SODIUM CHLORIDE [Concomitant]
     Dosage: UNK
     Route: 065
  20. ATORVASTEROL [Concomitant]
     Dosage: UNK
     Route: 065
  21. METOCARD [Concomitant]
     Dosage: UNK
     Route: 065
  22. CLEXANE [Concomitant]
     Dosage: UNK
     Route: 065
  23. ESTAZOLAM [Concomitant]
     Dosage: UNK
     Route: 065

REACTIONS (1)
  - Pneumonia [Recovered/Resolved]
